FAERS Safety Report 17916614 (Version 1)
Quarter: 2020Q2

REPORT INFORMATION
  Report Type: Spontaneous
  Country: US (occurrence: US)
  Receive Date: 20200619
  Receipt Date: 20200619
  Transmission Date: 20200714
  Serious: Yes (Other)
  Sender: FDA-Public Use
  Company Number: None

PATIENT
  Age: 32 Year
  Sex: Female

DRUGS (13)
  1. MAGNESIUM [Concomitant]
     Active Substance: MAGNESIUM
  2. ALBUTERNOL [Concomitant]
  3. NUVARING [Suspect]
     Active Substance: ETHINYL ESTRADIOL\ETONOGESTREL
     Indication: MENSTRUAL CYCLE MANAGEMENT
     Route: 067
     Dates: start: 20100901, end: 20111001
  4. VITAMIN D [Concomitant]
     Active Substance: VITAMIN D NOS
  5. PULMICORT TURBUHALER [Concomitant]
     Active Substance: BUDESONIDE
  6. CLARITIAN [Concomitant]
  7. PRENATAL VITAMINS [Concomitant]
     Active Substance: VITAMINS
  8. ALPHA LIOPIC ACID [Concomitant]
  9. SPRINTEC [Suspect]
     Active Substance: ETHINYL ESTRADIOL\NORGESTIMATE
     Indication: DYSMENORRHOEA
     Dosage: ?          QUANTITY:1 PILL;?
     Route: 048
     Dates: start: 20130201, end: 20170827
  10. ATROVENT [Concomitant]
     Active Substance: IPRATROPIUM BROMIDE
  11. COQ10 [Concomitant]
     Active Substance: UBIDECARENONE
  12. SPRINTEC [Suspect]
     Active Substance: ETHINYL ESTRADIOL\NORGESTIMATE
     Indication: CONTRACEPTION
     Dosage: ?          QUANTITY:1 PILL;?
     Route: 048
     Dates: start: 20130201, end: 20170827
  13. NUVARING [Suspect]
     Active Substance: ETHINYL ESTRADIOL\ETONOGESTREL
     Indication: CONTRACEPTION
     Route: 067
     Dates: start: 20100901, end: 20111001

REACTIONS (8)
  - Emotional disorder [None]
  - Confusional state [None]
  - Infertility [None]
  - Endometriosis [None]
  - Symptom masked [None]
  - Back pain [None]
  - Product label issue [None]
  - Polycystic ovaries [None]

NARRATIVE: CASE EVENT DATE: 20200516
